FAERS Safety Report 6164561-7 (Version None)
Quarter: 2009Q2

REPORT INFORMATION
  Report Type: 
  Country: None (occurrence: None)
  Receive Date: 20090423
  Receipt Date: 20090416
  Transmission Date: 20091009
  Serious: Yes (Other)
  Sender: FDA-Public Use
  Company Number: US-BAXTER-2008BH003839

PATIENT
  Sex: Male

DRUGS (2)
  1. FEIBA VH IMMUNO [Suspect]
     Indication: FACTOR VIII DEFICIENCY
     Dosage: DOSE UNIT:UNKNOWN
     Route: 065
  2. NOVOSEVEN [Suspect]
     Indication: FACTOR VIII DEFICIENCY
     Dosage: DOSE UNIT:UNKNOWN
     Route: 065

REACTIONS (5)
  - FACTOR VIII INHIBITION [None]
  - HEADACHE [None]
  - NAUSEA [None]
  - VISION BLURRED [None]
  - VOMITING [None]
